FAERS Safety Report 23746581 (Version 2)
Quarter: 2024Q2

REPORT INFORMATION
  Report Type: Spontaneous
  Country: NL (occurrence: NL)
  Receive Date: 20240416
  Receipt Date: 20240424
  Transmission Date: 20240716
  Serious: Yes (Hospitalization, Disabling, Other)
  Sender: FDA-Public Use
  Company Number: None

PATIENT
  Age: 60 Year
  Sex: Female
  Weight: 60 kg

DRUGS (1)
  1. COMBIGAN [Suspect]
     Active Substance: BRIMONIDINE TARTRATE\TIMOLOL MALEATE
     Indication: Eye disorder prophylaxis
     Dosage: 2 X PD?TIMOLOL/BRIMONIDINE EYE DROPS 5/2MG/ML / COMBIGAN EYE DROPS VIAL 5ML
     Route: 047
     Dates: start: 20240209

REACTIONS (4)
  - Atrial tachycardia [Not Recovered/Not Resolved]
  - Circulatory collapse [Not Recovered/Not Resolved]
  - Arrhythmia [Not Recovered/Not Resolved]
  - Conduction disorder [Not Recovered/Not Resolved]

NARRATIVE: CASE EVENT DATE: 20240101
